FAERS Safety Report 9395880 (Version 1)
Quarter: 2013Q3

REPORT INFORMATION
  Report Type: Spontaneous
  Country: FR (occurrence: FR)
  Receive Date: 20130711
  Receipt Date: 20130711
  Transmission Date: 20140515
  Serious: Yes (Other)
  Sender: FDA-Public Use
  Company Number: FR-GLAXOSMITHKLINE-B0904764A

PATIENT
  Sex: Female

DRUGS (5)
  1. TROBALT [Suspect]
     Indication: PARTIAL SEIZURES
     Route: 048
     Dates: start: 20130504
  2. LAMICTAL [Suspect]
     Indication: PARTIAL SEIZURES
     Route: 048
  3. RIVOTRIL [Suspect]
     Indication: PARTIAL SEIZURES
     Dosage: 4MG PER DAY
     Route: 065
  4. RUFINAMIDE [Suspect]
     Indication: PARTIAL SEIZURES
     Dosage: 2400MG PER DAY
     Route: 065
  5. VIMPAT [Suspect]
     Indication: PARTIAL SEIZURES
     Dosage: 300MG PER DAY
     Route: 065

REACTIONS (4)
  - Somnolence [Unknown]
  - Epilepsy [Unknown]
  - Fall [Unknown]
  - Jaw fracture [Unknown]
